FAERS Safety Report 4591206-X (Version None)
Quarter: 2005Q1

REPORT INFORMATION
  Report Type: 
  Country: None (occurrence: None)
  Receive Date: 20050224
  Receipt Date: 20050224
  Transmission Date: 20050727
  Serious: Yes (Other)
  Sender: FDA-Public Use
  Company Number: None

PATIENT
  Age: 33 Year
  Sex: Female

DRUGS (1)
  1. DIFLUCAN [Suspect]
     Indication: FUNGAL INFECTION
     Dosage: ORAL 1 Q D
     Route: 048
     Dates: start: 20050111, end: 20050118

REACTIONS (2)
  - PRURITUS [None]
  - VAGINAL DISCHARGE [None]
